FAERS Safety Report 8595208-8 (Version None)
Quarter: 2012Q3

REPORT INFORMATION
  Report Type: 
  Country: None (occurrence: None)
  Receive Date: 20120807
  Receipt Date: 20120807
  Transmission Date: 20120928
  Serious: Yes (Hospitalization)
  Sender: FDA-Public Use
  Company Number: None

PATIENT
  Sex: Male
  Weight: 73.18 kg

DRUGS (1)
  1. PEGINTERFERON ALFA-2A [Suspect]
     Dosage: 73.6 MG

REACTIONS (1)
  - HAEMOGLOBIN DECREASED [None]
